FAERS Safety Report 25712517 (Version 1)
Quarter: 2025Q3

REPORT INFORMATION
  Report Type: Spontaneous
  Country: US (occurrence: US)
  Receive Date: 20250821
  Receipt Date: 20250821
  Transmission Date: 20251020
  Serious: No
  Sender: SANOFI AVENTIS
  Company Number: US-SA-2025SA250282

PATIENT
  Age: 68 Year
  Sex: Female
  Weight: 61.36 kg

DRUGS (10)
  1. DUPIXENT [Suspect]
     Active Substance: DUPILUMAB
     Indication: Ill-defined disorder
     Dosage: 300 MG, QOW
     Route: 058
     Dates: start: 20250801
  2. VITAMIN D3 [Concomitant]
     Active Substance: CHOLECALCIFEROL
  3. MAGNESIUM [Concomitant]
     Active Substance: MAGNESIUM
  4. ZINC [Concomitant]
     Active Substance: ZINC
  5. HERBALS\TURMERIC [Concomitant]
     Active Substance: HERBALS\TURMERIC
  6. FISH OIL [Concomitant]
     Active Substance: FISH OIL
  7. VITAMINS [Concomitant]
     Active Substance: VITAMINS
  8. METHENAMINE HIPPURATE [Concomitant]
     Active Substance: METHENAMINE HIPPURATE
  9. PROGESTERONE [Concomitant]
     Active Substance: PROGESTERONE
  10. PROLIA [Concomitant]
     Active Substance: DENOSUMAB

REACTIONS (8)
  - Joint swelling [Not Recovered/Not Resolved]
  - Arthritis [Not Recovered/Not Resolved]
  - Pain in extremity [Not Recovered/Not Resolved]
  - Diarrhoea [Not Recovered/Not Resolved]
  - Injection site rash [Unknown]
  - Injection site erythema [Not Recovered/Not Resolved]
  - Arthralgia [Not Recovered/Not Resolved]
  - Product use in unapproved indication [Unknown]

NARRATIVE: CASE EVENT DATE: 20250801
